FAERS Safety Report 13635520 (Version 5)
Quarter: 2019Q4

REPORT INFORMATION
  Report Type: Spontaneous
  Country: US (occurrence: US)
  Receive Date: 20170609
  Receipt Date: 20191121
  Transmission Date: 20200122
  Serious: Yes (Death, Hospitalization)
  Sender: FDA-Public Use
  Company Number: US-PFIZER INC-2017252727

PATIENT
  Age: 78 Year
  Sex: Male

DRUGS (1)
  1. VENLAFAXINE HCL [Suspect]
     Active Substance: VENLAFAXINE HYDROCHLORIDE
     Indication: DEPRESSION
     Dosage: UNK
     Dates: start: 201206, end: 2012

REACTIONS (5)
  - Feeling abnormal [Unknown]
  - Mental disorder [Unknown]
  - Abnormal behaviour [Unknown]
  - Death [Fatal]
  - Aggression [Unknown]

NARRATIVE: CASE EVENT DATE: 2012
